FAERS Safety Report 23367774 (Version 1)
Quarter: 2024Q1

REPORT INFORMATION
  Report Type: Spontaneous
  Country: DE (occurrence: DE)
  Receive Date: 20240104
  Receipt Date: 20240104
  Transmission Date: 20240410
  Serious: Yes (Other)
  Sender: FDA-Public Use
  Company Number: DE-EMA-DD-20231220-7482701-164607

PATIENT
  Age: 55 Year
  Sex: Male

DRUGS (12)
  1. LEUCOVORIN [Suspect]
     Active Substance: LEUCOVORIN\LEUCOVORIN CALCIUM
     Indication: Colorectal cancer metastatic
     Dosage: 200 MG/SQM D1 AND 600 MG/SQM D1 + 2, Q14D
     Route: 065
  2. IRINOTECAN [Suspect]
     Active Substance: IRINOTECAN
     Indication: Colorectal cancer metastatic
     Dosage: 180 MG/SQM D1
     Route: 065
  3. OXALIPLATIN [Suspect]
     Active Substance: OXALIPLATIN
     Indication: Colorectal cancer metastatic
     Dosage: 85 MG/SQM D1
     Route: 065
  4. BEVACIZUMAB [Suspect]
     Active Substance: BEVACIZUMAB
     Indication: Colorectal cancer metastatic
     Dosage: 5 MILLIGRAM/KILOGRAM
     Route: 065
  5. CETUXIMAB [Suspect]
     Active Substance: CETUXIMAB
     Indication: Colorectal cancer metastatic
     Dosage: 250 MG/SQM WEEKLY
     Route: 065
  6. FLUOROURACIL [Suspect]
     Active Substance: FLUOROURACIL
     Indication: Colorectal cancer metastatic
     Dosage: 400 MG/SQM D1, 600 MG/SQM D1 + 2, Q14D
     Route: 065
  7. PEMBROLIZUMAB [Suspect]
     Active Substance: PEMBROLIZUMAB
     Indication: Colorectal cancer metastatic
     Dosage: 200 MILLIGRAM/SQ. METER, Q3W
     Route: 065
     Dates: start: 201712, end: 2018
  8. PEMBROLIZUMAB [Suspect]
     Active Substance: PEMBROLIZUMAB
     Indication: Adenocarcinoma of colon
  9. IPILIMUMAB [Concomitant]
     Active Substance: IPILIMUMAB
     Indication: Product used for unknown indication
     Dosage: 1 MILLIGRAM/KILOGRAM
     Route: 065
  10. IPILIMUMAB [Concomitant]
     Active Substance: IPILIMUMAB
     Dosage: 3 MG/KG IN CYCLE 1, FOLLOWED BY 1 MG/KG IN CYCLE 2-4. CYCLE 3 AND 4 WERE DELAYED
     Route: 065
  11. NIVOLUMAB [Concomitant]
     Active Substance: NIVOLUMAB
     Indication: Product used for unknown indication
     Dosage: 3 MILLIGRAM/KILOGRAM
     Route: 065
  12. NIVOLUMAB [Concomitant]
     Active Substance: NIVOLUMAB
     Dosage: DOSE WAS 1 MG /KG IN CYCLE 1 AND 3 MG/KG FROM CYCLE 2 ON.
     Route: 065

REACTIONS (3)
  - Immune-mediated hepatic disorder [Unknown]
  - Tumour pseudoprogression [Recovering/Resolving]
  - Drug resistance [Unknown]
